FAERS Safety Report 7626451-X (Version None)
Quarter: 2011Q3

REPORT INFORMATION
  Report Type: 
  Country: None (occurrence: None)
  Receive Date: 20110721
  Receipt Date: 20110718
  Transmission Date: 20111222
  Serious: Yes (Other)
  Sender: FDA-Public Use
  Company Number: US-PFIZER INC-2011162976

PATIENT
  Sex: Male
  Weight: 178.69 kg

DRUGS (1)
  1. VIAGRA [Suspect]
     Indication: SEXUAL DYSFUNCTION
     Dosage: UNK
     Route: 048
     Dates: start: 20110714, end: 20110701

REACTIONS (4)
  - SKIN DISCOLOURATION [None]
  - PENILE ERYTHEMA [None]
  - ABDOMINAL PAIN UPPER [None]
  - PENILE PAIN [None]
